FAERS Safety Report 6960116-2 (Version None)
Quarter: 2010Q3

REPORT INFORMATION
  Report Type: 
  Country: None (occurrence: None)
  Receive Date: 20100901
  Receipt Date: 20100827
  Transmission Date: 20110219
  Serious: Yes (Hospitalization, Other)
  Sender: FDA-Public Use
  Company Number: IT-ROXANE LABORATORIES, INC.-2010-RO-00370RO

PATIENT
  Age: 30 Month
  Sex: Female

DRUGS (4)
  1. METHADONE HCL [Suspect]
  2. LORAZEPAM [Suspect]
     Indication: TOXIC ENCEPHALOPATHY
  3. NALOXONE [Suspect]
     Indication: DRUG TOXICITY
  4. CLONAZEPAM [Suspect]
     Indication: TOXIC ENCEPHALOPATHY

REACTIONS (6)
  - ACCIDENTAL EXPOSURE [None]
  - ATROPHY [None]
  - DRUG INEFFECTIVE [None]
  - DRUG TOXICITY [None]
  - FEBRILE CONVULSION [None]
  - TOXIC ENCEPHALOPATHY [None]
